FAERS Safety Report 14261145 (Version 1)
Quarter: 2017Q4

REPORT INFORMATION
  Report Type: Spontaneous
  Country: HU (occurrence: HU)
  Receive Date: 20171207
  Receipt Date: 20171207
  Transmission Date: 20180321
  Serious: Yes (Other)
  Sender: FDA-Public Use
  Company Number: HU-009507513-1712HUN002089

PATIENT
  Age: 67 Year
  Sex: Female
  Weight: 80 kg

DRUGS (7)
  1. ACETYLCYSTEINE. [Concomitant]
     Active Substance: ACETYLCYSTEINE
     Dosage: 2X1 DOSE/DAY, 1-1-0 SCHEDULE
  2. PANTOPRAZOLE [Concomitant]
     Active Substance: PANTOPRAZOLE
     Dosage: 2X20 MG/DAY
  3. KALDYUM [Concomitant]
     Active Substance: POTASSIUM CHLORIDE
     Dosage: 1X1 TABLET/DAY
     Route: 048
  4. NIVESTIM [Concomitant]
     Active Substance: FILGRASTIM
     Dosage: 48 MILLION IU, UNK
  5. KEYTRUDA [Suspect]
     Active Substance: PEMBROLIZUMAB
     Indication: LUNG ADENOCARCINOMA
     Dosage: 150 MG EVERY 3 WEEKS, DOSE: 2MG/ BODY WEIGHT KG, 7TH CYCLE
     Dates: start: 20170705, end: 20171130
  6. DEPAKINE CHRONO [Concomitant]
     Active Substance: VALPROATE SODIUM
     Dosage: 1X300MG/DAY IN THE EVENING
  7. RIVOTRIL [Concomitant]
     Active Substance: CLONAZEPAM
     Dosage: 1 X 2MG/ DAY IN THE EVENING

REACTIONS (4)
  - Aspartate aminotransferase increased [Not Recovered/Not Resolved]
  - Neutropenia [Not Recovered/Not Resolved]
  - Autoimmune nephritis [Not Recovered/Not Resolved]
  - Alanine aminotransferase increased [Not Recovered/Not Resolved]

NARRATIVE: CASE EVENT DATE: 2017
